FAERS Safety Report 7045740-3 (Version None)
Quarter: 2010Q4

REPORT INFORMATION
  Report Type: 
  Country: None (occurrence: None)
  Receive Date: 20101014
  Receipt Date: 20101005
  Transmission Date: 20110411
  Serious: Yes (Other)
  Sender: FDA-Public Use
  Company Number: CA-MERCK-1010USA00611

PATIENT
  Age: 52 Year
  Sex: Male

DRUGS (8)
  1. ISENTRESS [Suspect]
     Route: 048
  2. ABACAVIR SULFATE [Suspect]
     Route: 065
  3. DIDANOSINE [Suspect]
     Route: 065
  4. INTELENCE [Suspect]
     Route: 048
  5. LAMIVUDINE [Suspect]
     Route: 065
  6. PREZISTA [Suspect]
     Route: 048
  7. RITONAVIR [Suspect]
     Route: 065
  8. STAVUDINE [Suspect]
     Route: 065

REACTIONS (1)
  - PROGRESSIVE EXTERNAL OPHTHALMOPLEGIA [None]
